FAERS Safety Report 22292809 (Version 5)
Quarter: 2023Q2

REPORT INFORMATION
  Report Type: Spontaneous
  Country: AU (occurrence: AU)
  Receive Date: 20230508
  Receipt Date: 20230621
  Transmission Date: 20230721
  Serious: Yes (Other)
  Sender: FDA-Public Use
  Company Number: AU-BIOGEN-2023BI01187681

PATIENT
  Age: 32 Year
  Sex: Female

DRUGS (3)
  1. PLEGRIDY [Suspect]
     Active Substance: PEGINTERFERON BETA-1A
     Indication: Relapsing-remitting multiple sclerosis
     Dosage: 125 MCG/0.5 ML MAINTENANCE DOSE
     Route: 050
     Dates: start: 20160905
  2. PLEGRIDY [Suspect]
     Active Substance: PEGINTERFERON BETA-1A
     Dosage: DAY 1 DOSE
     Route: 050
  3. PLEGRIDY [Suspect]
     Active Substance: PEGINTERFERON BETA-1A
     Dosage: DAY 15 DOSE
     Route: 050

REACTIONS (5)
  - Abdominal abscess [Not Recovered/Not Resolved]
  - Multiple sclerosis [Unknown]
  - Abscess limb [Not Recovered/Not Resolved]
  - Intervertebral disc protrusion [Unknown]
  - Skin disorder [Unknown]

NARRATIVE: CASE EVENT DATE: 20180501
